FAERS Safety Report 19138112 (Version 1)
Quarter: 2021Q2

REPORT INFORMATION
  Report Type: Report from Study
  Country: None (occurrence: CO)
  Receive Date: 20210415
  Receipt Date: 20210415
  Transmission Date: 20210717
  Serious: Yes (Other)
  Sender: FDA-Public Use
  Company Number: CO-ABBVIE-20K-036-3410505-00

PATIENT
  Sex: Male
  Weight: 110 kg

DRUGS (2)
  1. HUMIRA [Suspect]
     Active Substance: ADALIMUMAB
     Indication: PRODUCT USED FOR UNKNOWN INDICATION
     Route: 058
     Dates: start: 20140909
  2. HUMIRA [Suspect]
     Active Substance: ADALIMUMAB
     Indication: PSORIASIS
     Dosage: CITRATE FREE
     Route: 058
     Dates: end: 20210318

REACTIONS (12)
  - Rhinorrhoea [Recovering/Resolving]
  - Pain [Recovering/Resolving]
  - Influenza [Recovered/Resolved]
  - Discomfort [Recovering/Resolving]
  - Weight increased [Recovering/Resolving]
  - Hyperhidrosis [Recovering/Resolving]
  - Pain in extremity [Recovering/Resolving]
  - Amnesia [Recovering/Resolving]
  - Sneezing [Recovering/Resolving]
  - Nasopharyngitis [Unknown]
  - Influenza [Recovering/Resolving]
  - Oropharyngeal pain [Recovering/Resolving]

NARRATIVE: CASE EVENT DATE: 2019
